FAERS Safety Report 6676848-X (Version None)
Quarter: 2010Q2

REPORT INFORMATION
  Report Type: 
  Country: None (occurrence: None)
  Receive Date: 20100408
  Receipt Date: 20100408
  Transmission Date: 20101027
  Serious: No
  Sender: FDA-Public Use
  Company Number: None

PATIENT
  Age: 66 Year
  Sex: Female
  Weight: 99.6 kg

DRUGS (2)
  1. PEMETREXED 500 MG LILLY [Suspect]
     Indication: LUNG CANCER METASTATIC
     Dosage: 1000 MG Q3WEEKS IVPB
     Route: 042
     Dates: start: 20100104, end: 20100329
  2. DEXAMETHASONE [Concomitant]

REACTIONS (2)
  - EYE PAIN [None]
  - EYE SWELLING [None]
